FAERS Safety Report 8727375 (Version 2)
Quarter: 2014Q1

REPORT INFORMATION
  Report Type: Spontaneous
  Country: US (occurrence: US)
  Receive Date: 20120816
  Receipt Date: 20140205
  Transmission Date: 20141002
  Serious: No
  Sender: FDA-Public Use
  Company Number: US-AMGEN-USASP2012045407

PATIENT
  Age: 36 Year
  Sex: Female

DRUGS (8)
  1. NEULASTA [Suspect]
     Indication: CHEMOTHERAPY
     Dosage: UNK UNK, AFTER CHEMO
     Route: 065
     Dates: start: 20120713
  2. NEUPOGEN [Suspect]
     Indication: CHEMOTHERAPY
     Dosage: UNK UNK, AFTER CHEMO
     Route: 065
     Dates: start: 20120718
  3. 5-FU [Concomitant]
     Indication: BREAST CANCER
     Dosage: UNK
  4. ADRIAMYCIN [Concomitant]
     Indication: BREAST CANCER
     Dosage: UNK
  5. CYTOXAN [Concomitant]
     Indication: BREAST CANCER
     Dosage: UNK
  6. ZOFRAN [Concomitant]
     Dosage: UNK
  7. PRENATAL VITAMINS [Concomitant]
     Indication: PREGNANCY
     Dosage: UNK
  8. BENADRYL [Concomitant]
     Dosage: UNK

REACTIONS (3)
  - Oral pain [Unknown]
  - Mouth haemorrhage [Unknown]
  - Stomatitis [Unknown]
